FAERS Safety Report 4577355-0 (Version None)
Quarter: 2005Q1

REPORT INFORMATION
  Report Type: 
  Country: None (occurrence: None)
  Receive Date: 20050210
  Receipt Date: 20041012
  Transmission Date: 20050727
  Serious: Yes (Other)
  Sender: FDA-Public Use
  Company Number: JP-GLAXOSMITHKLINE-B0348576A

PATIENT
  Age: 26 Year
  Sex: Male

DRUGS (2)
  1. PAXIL [Suspect]
     Indication: DEPRESSION
     Dosage: 10MG PER DAY
     Route: 048
     Dates: start: 20041007
  2. ALPRAZOLAM [Suspect]
     Indication: ANXIETY
     Dosage: .4MG THREE TIMES PER DAY
     Route: 048
     Dates: start: 20041007

REACTIONS (2)
  - HYPOAESTHESIA [None]
  - SYNCOPE [None]
